FAERS Safety Report 10900431 (Version 2)
Quarter: 2015Q1

REPORT INFORMATION
  Report Type: Spontaneous
  Country: IT (occurrence: IT)
  Receive Date: 20150310
  Receipt Date: 20150331
  Transmission Date: 20150721
  Serious: Yes (Hospitalization, Other)
  Sender: FDA-Public Use
  Company Number: IT-ACCORD-029166

PATIENT
  Age: 41 Year
  Sex: Female

DRUGS (3)
  1. TOPIRAMATE. [Suspect]
     Active Substance: TOPIRAMATE
     Indication: MAJOR DEPRESSION
  2. ACETYLCARNITINE/ACETYLCARNITINE HYDROCHLORIDE [Concomitant]
  3. FLUOXETINE [Concomitant]
     Active Substance: FLUOXETINE\FLUOXETINE HYDROCHLORIDE

REACTIONS (4)
  - Pruritus [Recovered/Resolved]
  - Off label use [Unknown]
  - Skin lesion [Recovered/Resolved with Sequelae]
  - Skin hyperpigmentation [Not Recovered/Not Resolved]
